FAERS Safety Report 9267493 (Version 1)
Quarter: 2013Q2

REPORT INFORMATION
  Report Type: Spontaneous
  Country: US (occurrence: US)
  Receive Date: 20130502
  Receipt Date: 20130502
  Transmission Date: 20140414
  Serious: No
  Sender: FDA-Public Use
  Company Number: US-TEVA-402378USA

PATIENT
  Age: 76 Year
  Sex: Female
  Weight: 51.76 kg

DRUGS (4)
  1. AZILECT [Suspect]
     Indication: PARKINSON^S DISEASE
     Dates: start: 201212, end: 2013
  2. SINEMET [Concomitant]
     Indication: PARKINSON^S DISEASE
     Dosage: 25/100 MG
     Route: 048
  3. PROZAC [Concomitant]
     Indication: DEPRESSION
     Dosage: 20 MILLIGRAM DAILY; QD
     Route: 048
  4. LEVOTHYROXINE [Concomitant]
     Indication: HYPOTHYROIDISM
     Dosage: 20 MICROGRAM DAILY; QD
     Route: 048

REACTIONS (1)
  - Dizziness [Not Recovered/Not Resolved]
